FAERS Safety Report 19694928 (Version 3)
Quarter: 2021Q4

REPORT INFORMATION
  Report Type: Report from Study
  Country: GB (occurrence: GB)
  Receive Date: 20210813
  Receipt Date: 20211005
  Transmission Date: 20220303
  Serious: Yes (Other)
  Sender: FDA-Public Use
  Company Number: GB-JNJFOC-20210668070

PATIENT

DRUGS (2)
  1. PREDNISOLONE [Suspect]
     Active Substance: PREDNISOLONE
     Indication: Prostate cancer
     Dosage: 10 MG, QD
     Route: 065
     Dates: start: 20201027, end: 20210720
  2. ABIRATERONE ACETATE [Suspect]
     Active Substance: ABIRATERONE ACETATE
     Indication: Prostate cancer
     Dosage: 1 G, QD
     Route: 048
     Dates: start: 20201027, end: 20210909

REACTIONS (7)
  - Pain in extremity [Not Recovered/Not Resolved]
  - Chest pain [Unknown]
  - Back pain [Unknown]
  - Prostatic specific antigen increased [Unknown]
  - Haematuria [Recovering/Resolving]
  - Prostate cancer [Unknown]
  - Headache [Unknown]

NARRATIVE: CASE EVENT DATE: 20210601
